FAERS Safety Report 4499731-7 (Version None)
Quarter: 2004Q4

REPORT INFORMATION
  Report Type: 
  Country: None (occurrence: None)
  Receive Date: 20041108
  Receipt Date: 20041025
  Transmission Date: 20050328
  Serious: Yes (Hospitalization, Other)
  Sender: FDA-Public Use
  Company Number: 2004084536

PATIENT
  Age: 68 Year
  Sex: Female

DRUGS (2)
  1. ANTIVERT [Suspect]
     Indication: ILL-DEFINED DISORDER
  2. CARDIAC THERAPY (CARDIAC THERAPY) [Suspect]
     Indication: CARDIAC DISORDER

REACTIONS (4)
  - FEELING ABNORMAL [None]
  - IMPAIRED SELF-CARE [None]
  - MEDICATION ERROR [None]
  - RESPIRATORY ARREST [None]
